FAERS Safety Report 9175439 (Version 1)
Quarter: 2013Q1

REPORT INFORMATION
  Report Type: Report from Study
  Country: US (occurrence: US)
  Receive Date: 20130320
  Receipt Date: 20130320
  Transmission Date: 20140127
  Serious: Yes (Disabling)
  Sender: FDA-Public Use
  Company Number: US-ABBOTT-13P-163-1062416-00

PATIENT
  Sex: Female
  Weight: 68.1 kg

DRUGS (4)
  1. HUMIRA [Suspect]
     Indication: PSORIATIC ARTHROPATHY
     Route: 058
     Dates: start: 201204
  2. UNKNOWN MEDICATION (NON-ABBOTT) [Concomitant]
     Indication: THYROID DISORDER
  3. PREDNISONE (NON-ABBOTT) [Concomitant]
     Indication: PSORIATIC ARTHROPATHY
  4. MULTIVITAMIN (NON-ABBOTT) [Concomitant]
     Indication: PRODUCT USED FOR UNKNOWN INDICATION

REACTIONS (5)
  - Vision blurred [Not Recovered/Not Resolved]
  - Impaired driving ability [Not Recovered/Not Resolved]
  - Injection site rash [Not Recovered/Not Resolved]
  - Photophobia [Not Recovered/Not Resolved]
  - Rash [Not Recovered/Not Resolved]
